FAERS Safety Report 13405595 (Version 2)
Quarter: 2017Q2

REPORT INFORMATION
  Report Type: Spontaneous
  Country: US (occurrence: US)
  Receive Date: 20170405
  Receipt Date: 20170505
  Transmission Date: 20170830
  Serious: Yes (Hospitalization)
  Sender: FDA-Public Use
  Company Number: US-ASTRAZENECA-2017SE33231

PATIENT
  Age: 60 Year
  Sex: Female
  Weight: 97.5 kg

DRUGS (2)
  1. BYDUREON [Suspect]
     Active Substance: EXENATIDE
     Route: 058
     Dates: start: 2015
  2. BYETTA [Concomitant]
     Active Substance: EXENATIDE
     Dosage: TWO TIMES A DAY
     Route: 058
     Dates: start: 2013

REACTIONS (5)
  - Device malfunction [Unknown]
  - Anaphylactic shock [Unknown]
  - Drug dose omission [Unknown]
  - Intentional product misuse [Unknown]
  - Injection site nodule [Unknown]

NARRATIVE: CASE EVENT DATE: 2015
